FAERS Safety Report 11539007 (Version 3)
Quarter: 2015Q4

REPORT INFORMATION
  Report Type: Spontaneous
  Country: RS (occurrence: RS)
  Receive Date: 20150923
  Receipt Date: 20151016
  Transmission Date: 20160304
  Serious: Yes (Other)
  Sender: FDA-Public Use
  Company Number: RS-ROCHE-1636821

PATIENT
  Age: 60 Year
  Sex: Female

DRUGS (3)
  1. HERCEPTIN [Suspect]
     Active Substance: TRASTUZUMAB
     Indication: BREAST CANCER
     Dosage: 1ST CYCLE
     Route: 042
     Dates: start: 20150518
  2. TAXOL [Concomitant]
     Active Substance: PACLITAXEL
     Indication: BREAST CANCER
     Route: 065
     Dates: start: 20150519, end: 20150721
  3. HERCEPTIN [Suspect]
     Active Substance: TRASTUZUMAB
     Dosage: FROM 2ND CYCLE
     Route: 042
     Dates: end: 20150831

REACTIONS (4)
  - Tachycardia [Recovered/Resolved]
  - Pericardial effusion [Recovered/Resolved]
  - Ejection fraction decreased [Recovered/Resolved]
  - Hypokinesia [Recovered/Resolved]

NARRATIVE: CASE EVENT DATE: 20150831
